FAERS Safety Report 20573307 (Version 1)
Quarter: 2022Q1

REPORT INFORMATION
  Report Type: Spontaneous
  Country: US (occurrence: None)
  Receive Date: 20220309
  Receipt Date: 20220309
  Transmission Date: 20220423
  Serious: Yes (Death)
  Sender: FDA-Public Use
  Company Number: None

PATIENT
  Age: 77 Year
  Sex: Male

DRUGS (14)
  1. TIVICAY [Suspect]
     Active Substance: DOLUTEGRAVIR SODIUM
     Indication: HIV infection
     Dates: start: 20200702
  2. DESCOVY [Suspect]
     Active Substance: EMTRICITABINE\TENOFOVIR ALAFENAMIDE FUMARATE
     Dates: start: 20201026, end: 20220309
  3. BACTRIM DS [Concomitant]
  4. PRADAXA [Concomitant]
  5. TRELEGY ELLIPTA [Concomitant]
  6. LANSOPRAZOLE [Concomitant]
  7. LEVETIRACETAM [Concomitant]
  8. MYBETRIQ [Concomitant]
  9. INCRUSE [Concomitant]
  10. K-PAX [Concomitant]
  11. PROAIR [Concomitant]
  12. MONTELUKAST [Concomitant]
  13. VALTREX [Concomitant]
  14. ROSUVASTATIN [Concomitant]

REACTIONS (1)
  - Death [None]

NARRATIVE: CASE EVENT DATE: 20220309
